FAERS Safety Report 8118799-X (Version None)
Quarter: 2012Q1

REPORT INFORMATION
  Report Type: 
  Country: None (occurrence: None)
  Receive Date: 20120207
  Receipt Date: 20120131
  Transmission Date: 20120608
  Serious: No
  Sender: FDA-Public Use
  Company Number: US-B.I. PHARMACEUTICALS,INC./RIDGEFIELD-2011-BP-27725BP

PATIENT
  Sex: Male
  Weight: 103.87 kg

DRUGS (5)
  1. WELLBUTRIN [Concomitant]
     Indication: DEPRESSION
  2. MULTI-VITAMINS [Concomitant]
  3. PROAIR HFA [Concomitant]
     Dates: start: 20120104
  4. ATIVAN [Concomitant]
     Indication: ANXIETY
     Dosage: 4 MG
  5. SPIRIVA [Suspect]
     Indication: CHRONIC OBSTRUCTIVE PULMONARY DISEASE
     Dosage: 18 MCG
     Route: 055
     Dates: start: 20111122, end: 20111201

REACTIONS (5)
  - LIP SWELLING [None]
  - SWOLLEN TONGUE [None]
  - PYREXIA [None]
  - SWELLING [None]
  - BURNING SENSATION [None]
